FAERS Safety Report 8552606-6 (Version None)
Quarter: 2012Q3

REPORT INFORMATION
  Report Type: 
  Country: None (occurrence: None)
  Receive Date: 20120731
  Receipt Date: 20120723
  Transmission Date: 20120928
  Serious: Yes (Death, Hospitalization, Other)
  Sender: FDA-Public Use
  Company Number: US-BAYER-2012-062820

PATIENT
  Age: 69 Year
  Sex: Male
  Weight: 68.04 kg

DRUGS (5)
  1. XARELTO [Interacting]
     Indication: CEREBROVASCULAR ACCIDENT PROPHYLAXIS
     Dosage: 20 MG, UNK
     Route: 048
     Dates: end: 20120601
  2. AMIODARONE HCL [Concomitant]
     Dates: start: 20120601
  3. XARELTO [Interacting]
     Indication: ATRIAL FIBRILLATION
  4. CLOPIDOGREL [Interacting]
     Dates: end: 20120601
  5. ASPIRIN [Suspect]

REACTIONS (6)
  - POLYP [None]
  - COLON NEOPLASM [None]
  - MYOCARDIAL INFARCTION [None]
  - DEATH [None]
  - COLON OPERATION [None]
  - GASTROINTESTINAL HAEMORRHAGE [None]
